FAERS Safety Report 8074455-8 (Version None)
Quarter: 2012Q1

REPORT INFORMATION
  Report Type: 
  Country: None (occurrence: None)
  Receive Date: 20120126
  Receipt Date: 20120124
  Transmission Date: 20120608
  Serious: Yes (Death)
  Sender: FDA-Public Use
  Company Number: US-B.I. PHARMACEUTICALS,INC./RIDGEFIELD-2011-BP-24285BP

PATIENT
  Age: 74 Year
  Sex: Male

DRUGS (21)
  1. DIGOXIN [Concomitant]
  2. METFORMIN HCL [Concomitant]
  3. IRON [Concomitant]
  4. NORCO [Concomitant]
  5. LISINOPRIL [Concomitant]
  6. SYNTHROID [Concomitant]
  7. ADVAIR DISKUS 100/50 [Concomitant]
  8. PLAVIX [Concomitant]
  9. M.V.I. [Concomitant]
  10. OMEPRAZOLE [Concomitant]
  11. LIPITOR [Concomitant]
  12. BONIVA [Concomitant]
  13. SPIRIVA [Concomitant]
  14. PRADAXA [Suspect]
     Indication: ATRIAL FIBRILLATION
     Dosage: 300 MG
     Route: 048
     Dates: start: 20110607
  15. LUTEIN [Concomitant]
  16. FISH OIL [Concomitant]
  17. VITAMIN B-12 [Concomitant]
  18. LASIX [Concomitant]
  19. COREG [Concomitant]
  20. ASPIRIN [Concomitant]
  21. NEURONTIN [Concomitant]

REACTIONS (4)
  - BLOOD URINE PRESENT [None]
  - PROCEDURAL HAEMORRHAGE [None]
  - RECTAL HAEMORRHAGE [None]
  - HAEMATOCHEZIA [None]
